FAERS Safety Report 8104385-4 (Version None)
Quarter: 2012Q1

REPORT INFORMATION
  Report Type: 
  Country: None (occurrence: None)
  Receive Date: 20120130
  Receipt Date: 20120124
  Transmission Date: 20120608
  Serious: Yes (Hospitalization, Disabling)
  Sender: FDA-Public Use
  Company Number: US-ROXANE LABORATORIES, INC.-2012-RO-00529RO

PATIENT
  Age: 40 Year
  Sex: Male

DRUGS (2)
  1. OXYCODONE HCL [Suspect]
     Indication: BACK PAIN
     Dosage: 40 MG
  2. OXYCODONE AND ACETAMINOPHEN [Suspect]
     Indication: BACK PAIN

REACTIONS (2)
  - HYPERAESTHESIA [None]
  - DRUG DEPENDENCE [None]
